FAERS Safety Report 4536397-1 (Version None)
Quarter: 2004Q4

REPORT INFORMATION
  Report Type: 
  Country: None (occurrence: None)
  Receive Date: 20041223
  Receipt Date: 20040920
  Transmission Date: 20050328
  Serious: No
  Sender: FDA-Public Use
  Company Number: US-GLAXOSMITHKLINE-A0526441A

PATIENT
  Age: 49 Year
  Sex: Female

DRUGS (3)
  1. FLONASE [Suspect]
     Indication: ILL-DEFINED DISORDER
     Dosage: 1PUFF PER DAY
     Route: 045
     Dates: start: 20040919
  2. AMBIEN [Concomitant]
  3. COZAAR [Concomitant]

REACTIONS (1)
  - HERPES SIMPLEX [None]
